FAERS Safety Report 10544208 (Version 3)
Quarter: 2014Q4

REPORT INFORMATION
  Report Type: Spontaneous
  Country: CZ (occurrence: CZ)
  Receive Date: 20141027
  Receipt Date: 20141114
  Transmission Date: 20150529
  Serious: Yes (Hospitalization, Other)
  Sender: FDA-Public Use
  Company Number: CZ-TEVA-515267ISR

PATIENT
  Sex: Female

DRUGS (11)
  1. PROTEVASC 35 MG TABLETY S PRODLOUENYM UVOLOVANIM [Suspect]
     Active Substance: TRIMETAZIDINE
     Dosage: 70 MILLIGRAM DAILY;
     Route: 048
  2. PERINDOPRIL [Suspect]
     Active Substance: PERINDOPRIL
     Dosage: 16 MILLIGRAM DAILY;
     Route: 048
  3. BLESSIN 160 MG [Suspect]
     Active Substance: VALSARTAN
     Dosage: 160 MILLIGRAM DAILY;
     Route: 048
  4. EGITROMB 75 MG [Suspect]
     Active Substance: CLOPIDOGREL BISULFATE
     Dosage: 75 MILLIGRAM DAILY;
     Route: 048
  5. MOXONIDIN ACTAVIS 0.3 MG [Suspect]
     Active Substance: MOXONIDINE
     Dosage: .6 MILLIGRAM DAILY;
     Route: 048
  6. FURON 40 MG [Suspect]
     Active Substance: FUROSEMIDE
     Dosage: 80 MILLIGRAM DAILY;
     Route: 048
  7. RIVOCOR 10 [Suspect]
     Active Substance: BISOPROLOL FUMARATE
     Dosage: 20 MILLIGRAM DAILY;
     Route: 048
  8. ANOPYRIN 100 MG [Suspect]
     Active Substance: ASPIRIN
     Dosage: 200 MILLIGRAM DAILY;
     Route: 048
  9. LOSEPRAZOL [Suspect]
     Active Substance: OMEPRAZOLE
     Dosage: 20 MILLIGRAM DAILY;
     Route: 048
  10. MONO MACK DEPOT [Suspect]
     Active Substance: ISOSORBIDE MONONITRATE
     Dosage: 100 MILLIGRAM DAILY;
     Route: 048
  11. AMLATOR 10 MG/10 MG POTAHOVANE TABLETY [Suspect]
     Active Substance: AMLODIPINE BESYLATE\ATORVASTATIN
     Dosage: 2 DOSAGE FORMS DAILY; 1 DOSAGE FORM = 10 MG AMLODIPINE + 10 MG ATORVASTATIN
     Route: 048

REACTIONS (2)
  - Vomiting [Unknown]
  - Nausea [Unknown]
